FAERS Safety Report 8160984-5 (Version None)
Quarter: 2012Q1

REPORT INFORMATION
  Report Type: 
  Country: None (occurrence: None)
  Receive Date: 20120223
  Receipt Date: 20120215
  Transmission Date: 20120608
  Serious: Yes (Hospitalization, Other)
  Sender: FDA-Public Use
  Company Number: US-ASTRAZENECA-2012SE08471

PATIENT
  Age: 84 Year
  Sex: Female

DRUGS (1)
  1. ATACAND [Suspect]
     Route: 048

REACTIONS (2)
  - BREAST CANCER FEMALE [None]
  - FEELING DRUNK [None]
